FAERS Safety Report 8729356 (Version 3)
Quarter: 2013Q4

REPORT INFORMATION
  Report Type: Spontaneous
  Country: FR (occurrence: FR)
  Receive Date: 20120817
  Receipt Date: 20131007
  Transmission Date: 20140711
  Serious: Yes (Hospitalization, Other)
  Sender: FDA-Public Use
  Company Number: FR-PFIZER INC-2012195431

PATIENT
  Age: 58 Year
  Sex: Female

DRUGS (11)
  1. TAHOR [Suspect]
     Dosage: 40 MG, 1X/DAY
     Route: 048
     Dates: end: 20120726
  2. COLCHIMAX [Interacting]
     Indication: GOUT
     Dosage: 1 DF, 1X/DAY
     Route: 048
     Dates: start: 20120710, end: 20120724
  3. NEORAL [Concomitant]
     Dosage: UNK
     Route: 048
  4. APROVEL [Concomitant]
     Dosage: UNK
     Route: 048
  5. LEVOTHYROX [Concomitant]
     Dosage: UNK
     Route: 048
  6. METFORMINE MYLAN [Concomitant]
     Dosage: UNK
     Route: 048
  7. CELLCEPT [Concomitant]
     Dosage: UNK
     Route: 048
  8. TEMERIT [Concomitant]
     Dosage: UNK
     Route: 048
  9. OMACOR [Concomitant]
     Dosage: UNK
     Route: 048
  10. DEROXAT [Concomitant]
     Dosage: UNK
     Route: 048
  11. RENAGEL [Concomitant]
     Dosage: UNK
     Route: 048

REACTIONS (8)
  - Drug interaction [Recovered/Resolved]
  - Rhabdomyolysis [Recovered/Resolved]
  - Blood creatine phosphokinase increased [Recovered/Resolved]
  - Muscular weakness [Recovered/Resolved]
  - Gout [Unknown]
  - Diarrhoea [Unknown]
  - Fatigue [Unknown]
  - Decreased appetite [Unknown]
